FAERS Safety Report 16108407 (Version 1)
Quarter: 2019Q1

REPORT INFORMATION
  Report Type: Spontaneous
  Country: US (occurrence: US)
  Receive Date: 20190323
  Receipt Date: 20190323
  Transmission Date: 20190418
  Serious: No
  Sender: FDA-Public Use
  Company Number: US-AMGEN-USASP2019042951

PATIENT

DRUGS (1)
  1. AIMOVIG [Suspect]
     Active Substance: ERENUMAB-AOOE
     Indication: PRODUCT USED FOR UNKNOWN INDICATION
     Dosage: UNK
     Route: 065

REACTIONS (20)
  - Migraine with aura [Unknown]
  - Alopecia [Unknown]
  - Stress [Unknown]
  - Asthenia [Unknown]
  - Visual impairment [Unknown]
  - Blood test abnormal [Unknown]
  - Nausea [Unknown]
  - Raynaud^s phenomenon [Unknown]
  - Metabolic disorder [Unknown]
  - Insomnia [Unknown]
  - Blood triglycerides increased [Unknown]
  - Decreased appetite [Unknown]
  - Hypoaesthesia [Unknown]
  - Metrorrhagia [Unknown]
  - Fatigue [Unknown]
  - Palpitations [Unknown]
  - Paraesthesia [Unknown]
  - Fall [Unknown]
  - Vestibular migraine [Unknown]
  - Injection site erythema [Unknown]
